FAERS Safety Report 24538964 (Version 1)
Quarter: 2024Q4

REPORT INFORMATION
  Report Type: Spontaneous
  Country: FR (occurrence: FR)
  Receive Date: 20241023
  Receipt Date: 20241023
  Transmission Date: 20250115
  Serious: Yes (Other)
  Sender: CELLTRION
  Company Number: None

PATIENT

DRUGS (5)
  1. INFLIXIMAB [Suspect]
     Active Substance: INFLIXIMAB
     Indication: Colitis ulcerative
     Dosage: 240 MG, Q2WEEKS
     Route: 058
     Dates: start: 20220706
  2. MESALAMINE [Suspect]
     Active Substance: MESALAMINE
     Indication: Colitis ulcerative
     Dosage: 2 G, EVERY 12 HOURS
     Route: 048
     Dates: start: 20220708, end: 20230221
  3. MESALAMINE [Suspect]
     Active Substance: MESALAMINE
     Dosage: 1.6 G, EVERY 8 HOURS
     Route: 048
     Dates: start: 20230221, end: 2023
  4. MESALAMINE [Suspect]
     Active Substance: MESALAMINE
     Dosage: 1 DF ONCE A DAY
     Route: 054
     Dates: start: 20231010, end: 202310
  5. MESALAMINE [Suspect]
     Active Substance: MESALAMINE
     Dosage: 1 DF ONCE A DAY
     Route: 054
     Dates: start: 20231031

REACTIONS (2)
  - Diabetes insipidus [Recovering/Resolving]
  - Intentional product use issue [Unknown]

NARRATIVE: CASE EVENT DATE: 20230701
